FAERS Safety Report 9130684 (Version 2)
Quarter: 2013Q1

REPORT INFORMATION
  Report Type: Spontaneous
  Country: US (occurrence: US)
  Receive Date: 20130301
  Receipt Date: 20130320
  Transmission Date: 20140127
  Serious: No
  Sender: FDA-Public Use
  Company Number: US-BIOGENIDEC-2013BI017804

PATIENT
  Age: 39 None
  Sex: Female

DRUGS (1)
  1. AVONEX [Suspect]
     Indication: MULTIPLE SCLEROSIS
     Route: 030
     Dates: start: 20130125

REACTIONS (3)
  - Fear [Not Recovered/Not Resolved]
  - Fear of injection [Unknown]
  - Influenza like illness [Recovered/Resolved]
